FAERS Safety Report 6861197-7 (Version None)
Quarter: 2010Q3

REPORT INFORMATION
  Report Type: 
  Country: None (occurrence: None)
  Receive Date: 20100720
  Receipt Date: 20100713
  Transmission Date: 20110219
  Serious: Yes (Other)
  Sender: FDA-Public Use
  Company Number: US-JNJFOC-20100704634

PATIENT
  Age: 35 Year
  Sex: Female

DRUGS (1)
  1. LEVAQUIN [Suspect]
     Indication: SINUSITIS
     Route: 048

REACTIONS (2)
  - TENDON DISORDER [None]
  - TENOSYNOVITIS [None]
